FAERS Safety Report 11043638 (Version 1)
Quarter: 2015Q2

REPORT INFORMATION
  Report Type: Spontaneous
  Country: FR (occurrence: FR)
  Receive Date: 20150417
  Receipt Date: 20150417
  Transmission Date: 20150821
  Serious: Yes (Death, Life-Threatening)
  Sender: FDA-Public Use
  Company Number: FR-SA-2015SA047878

PATIENT
  Age: 58 Year
  Sex: Female

DRUGS (22)
  1. PARACETAMOL [Suspect]
     Active Substance: ACETAMINOPHEN
     Indication: PAIN
     Route: 042
     Dates: start: 20150217, end: 20150219
  2. TAHOR [Concomitant]
     Active Substance: ATORVASTATIN CALCIUM
  3. FUROSEMIDE. [Suspect]
     Active Substance: FUROSEMIDE
     Indication: CHRONIC KIDNEY DISEASE
     Route: 042
     Dates: start: 20150218, end: 20150221
  4. ROVALCYTE [Suspect]
     Active Substance: VALGANCICLOVIR HYDROCHLORIDE
     Route: 048
     Dates: start: 20150220, end: 20150220
  5. LASILIX [Concomitant]
     Active Substance: FUROSEMIDE
     Dosage: 250 MG INJECTABLE: 1 AMPOULE
  6. SPASFON [Concomitant]
     Active Substance: PHLOROGLUCINOL
     Dosage: 80 MG
  7. LOXEN [Concomitant]
     Active Substance: NICARDIPINE HYDROCHLORIDE
  8. GLUCOR [Concomitant]
     Active Substance: ACARBOSE
  9. LASILIX SPECIAL [Suspect]
     Active Substance: FUROSEMIDE
     Indication: CHRONIC KIDNEY DISEASE
     Route: 048
     Dates: start: 20150220, end: 20150221
  10. DRIPTANE [Suspect]
     Active Substance: OXYBUTYNIN
     Route: 048
     Dates: start: 20150218, end: 20150222
  11. CELLCEPT [Suspect]
     Active Substance: MYCOPHENOLATE MOFETIL\MYCOPHENOLATE MOFETIL HYDROCHLORIDE
     Indication: PROPHYLAXIS AGAINST TRANSPLANT REJECTION
     Route: 048
     Dates: start: 20150216, end: 20150301
  12. BACTRIM [Suspect]
     Active Substance: SULFAMETHOXAZOLE\TRIMETHOPRIM
     Dosage: 1 TAB   EVERY  2 DAYS
     Route: 048
     Dates: start: 20150218, end: 20150220
  13. KARDEGIC [Concomitant]
     Active Substance: ASPIRIN LYSINE
  14. TRIATEC [Concomitant]
     Active Substance: RAMIPRIL
  15. ACEBUTOLOL [Suspect]
     Active Substance: ACEBUTOLOL
     Indication: HYPERTENSION
     Route: 048
     Dates: start: 20150220, end: 20150220
  16. CORDARONE [Suspect]
     Active Substance: AMIODARONE HYDROCHLORIDE
     Indication: ATRIAL FIBRILLATION
     Dosage: 6 TABLETS OF 200 MG
     Route: 048
     Dates: start: 20150220, end: 20150220
  17. CORTANCYL [Suspect]
     Active Substance: PREDNISONE
     Indication: PROPHYLAXIS AGAINST TRANSPLANT REJECTION
     Route: 048
     Dates: start: 20150220, end: 20150222
  18. AMOXICILLIN/CLAVULANIC ACID [Suspect]
     Active Substance: AMOXICILLIN\CLAVULANIC ACID
     Dosage: 1G/125MGX3/D
     Route: 048
     Dates: start: 20150219, end: 20150224
  19. PARACETAMOL [Suspect]
     Active Substance: ACETAMINOPHEN
     Indication: PAIN
     Route: 042
     Dates: start: 20150220, end: 20150221
  20. INEXIUM [Suspect]
     Active Substance: ESOMEPRAZOLE
     Indication: PROPHYLAXIS AGAINST GASTROINTESTINAL ULCER
     Route: 048
     Dates: start: 20150216, end: 20150221
  21. ANTILYMPHOCYTE SERUM [Suspect]
     Active Substance: THYMOCYTE IMMUNE GLOBULIN NOS
     Indication: PROPHYLAXIS AGAINST TRANSPLANT REJECTION
     Dosage: ACCORDING TO PROTOCOL
     Route: 042
     Dates: start: 20150215, end: 20150219
  22. SECTRAL [Concomitant]
     Active Substance: ACEBUTOLOL HYDROCHLORIDE

REACTIONS (18)
  - Ischaemia [None]
  - Atrial fibrillation [None]
  - Cardiac cirrhosis [None]
  - Gastrointestinal necrosis [None]
  - Hypoglycaemia [None]
  - Acidosis [None]
  - Cor pulmonale acute [None]
  - Spleen disorder [None]
  - Peritonitis [None]
  - Gastrointestinal perforation [None]
  - Cardiogenic shock [Fatal]
  - Hepatocellular injury [None]
  - Hepatic failure [None]
  - Multi-organ failure [None]
  - Septic shock [None]
  - Agranulocytosis [None]
  - Renal ischaemia [None]
  - Gastrointestinal ischaemia [None]

NARRATIVE: CASE EVENT DATE: 20150220
